FAERS Safety Report 22212834 (Version 11)
Quarter: 2024Q4

REPORT INFORMATION
  Report Type: Report from Study
  Country: US (occurrence: US)
  Receive Date: 20230414
  Receipt Date: 20241127
  Transmission Date: 20250115
  Serious: Yes (Other)
  Sender: NOVARTIS
  Company Number: US-002147023-NVSC2023US086355

PATIENT
  Age: 33 Year
  Sex: Female

DRUGS (6)
  1. KESIMPTA [Suspect]
     Active Substance: OFATUMUMAB
     Indication: Multiple sclerosis
     Dosage: 20 MG, QW
     Route: 058
     Dates: start: 20230123
  2. KESIMPTA [Suspect]
     Active Substance: OFATUMUMAB
     Indication: Relapsing multiple sclerosis
     Dosage: 20 MG, QMO
     Route: 058
     Dates: end: 20240830
  3. KESIMPTA [Suspect]
     Active Substance: OFATUMUMAB
     Indication: Neuromyelitis optica spectrum disorder
  4. VITAMINS [Concomitant]
     Active Substance: VITAMINS
     Indication: Product used for unknown indication
     Dosage: UNK
     Route: 065
  5. MINERALS\VITAMINS [Concomitant]
     Active Substance: MINERALS\VITAMINS
     Indication: Product used for unknown indication
     Dosage: UNK
     Route: 065
  6. VITAMIN C [Concomitant]
     Active Substance: ASCORBIC ACID
     Indication: Product used for unknown indication
     Dosage: UNK
     Route: 065

REACTIONS (18)
  - Optic atrophy [Unknown]
  - Demyelination [Unknown]
  - Neuromyelitis optica spectrum disorder [Unknown]
  - Rash [Recovered/Resolved]
  - Asthenia [Unknown]
  - Injection site pain [Unknown]
  - Nasopharyngitis [Unknown]
  - Nasal congestion [Unknown]
  - Throat irritation [Unknown]
  - Chills [Unknown]
  - Product preparation error [Unknown]
  - Hypersensitivity [Unknown]
  - Peripheral swelling [Recovered/Resolved]
  - Hypoaesthesia [Unknown]
  - Memory impairment [Unknown]
  - Wrong technique in device usage process [Unknown]
  - Muscle spasms [Unknown]
  - Affective disorder [Unknown]

NARRATIVE: CASE EVENT DATE: 20230123
